FAERS Safety Report 5810986-6 (Version None)
Quarter: 2008Q3

REPORT INFORMATION
  Report Type: 
  Country: None (occurrence: None)
  Receive Date: 20080716
  Receipt Date: 20080707
  Transmission Date: 20090109
  Serious: Yes (Hospitalization, Other)
  Sender: FDA-Public Use
  Company Number: HQWYE185516JUL04

PATIENT
  Sex: Female

DRUGS (7)
  1. PREMPRO [Suspect]
  2. MEDROXYPROGESTERONE [Suspect]
  3. ESTRADERM [Suspect]
  4. PREMPHASE 14/14 [Suspect]
  5. PROVERA [Suspect]
  6. PREMARIN [Suspect]
  7. ESTRACE [Suspect]

REACTIONS (1)
  - CONTRALATERAL BREAST CANCER [None]
